FAERS Safety Report 8118745-9 (Version None)
Quarter: 2012Q1

REPORT INFORMATION
  Report Type: 
  Country: None (occurrence: None)
  Receive Date: 20120202
  Receipt Date: 20120123
  Transmission Date: 20120608
  Serious: Yes (Death)
  Sender: FDA-Public Use
  Company Number: 2012MA001183

PATIENT
  Age: 64 Year
  Sex: Female
  Weight: 85 kg

DRUGS (4)
  1. MIRTAZAPINE [Suspect]
     Dosage: 30 MG
  2. VALPROATE SODIUM [Suspect]
     Dosage: 300 MG
  3. MIRTAZAPINE [Suspect]
     Dosage: 30 MG
  4. ESCITALOPRAM [Suspect]
     Dosage: 10 MG

REACTIONS (3)
  - COMPLETED SUICIDE [None]
  - INCORRECT DOSE ADMINISTERED [None]
  - TOXICITY TO VARIOUS AGENTS [None]
